FAERS Safety Report 17247143 (Version 4)
Quarter: 2020Q2

REPORT INFORMATION
  Report Type: Spontaneous
  Country: US (occurrence: US)
  Receive Date: 20200108
  Receipt Date: 20200519
  Transmission Date: 20200713
  Serious: No
  Sender: FDA-Public Use
  Company Number: US-PFIZER INC-2020005300

PATIENT
  Age: 14 Month
  Sex: Female
  Weight: 8.16 kg

DRUGS (1)
  1. INFANTS ADVIL CONCENTRATED DROPS [Suspect]
     Active Substance: IBUPROFEN
     Indication: TEETHING
     Dosage: 1.875 ML, 1X/DAY
     Route: 048
     Dates: start: 20200106

REACTIONS (2)
  - Retching [Unknown]
  - Product use issue [Unknown]

NARRATIVE: CASE EVENT DATE: 20200106
